FAERS Safety Report 7339395-8 (Version None)
Quarter: 2011Q1

REPORT INFORMATION
  Report Type: 
  Country: None (occurrence: None)
  Receive Date: 20110308
  Receipt Date: 20110221
  Transmission Date: 20110831
  Serious: Yes (Other)
  Sender: FDA-Public Use
  Company Number: IE-GENENTECH-260544

PATIENT
  Sex: Female

DRUGS (9)
  1. XOLAIR [Suspect]
     Dosage: UNK
     Dates: start: 20080325
  2. XOLAIR [Suspect]
     Dosage: UNK
     Dates: start: 20080408
  3. FLUTICASONE PROPIONATE [Concomitant]
     Indication: PRODUCT USED FOR UNKNOWN INDICATION
  4. SINGULAIR [Concomitant]
     Indication: PRODUCT USED FOR UNKNOWN INDICATION
  5. XOLAIR [Suspect]
     Indication: ASTHMA
     Dosage: 225 MG, Q2W
     Route: 058
     Dates: start: 20070101, end: 20070101
  6. XOLAIR [Suspect]
     Dosage: UNK
     Route: 058
     Dates: start: 20080311
  7. XOLAIR [Suspect]
     Dosage: UNK
     Route: 058
     Dates: start: 20080227
  8. RHINOCORT [Concomitant]
     Indication: PRODUCT USED FOR UNKNOWN INDICATION
  9. VENTOLIN [Concomitant]
     Indication: PRODUCT USED FOR UNKNOWN INDICATION

REACTIONS (6)
  - PARAESTHESIA ORAL [None]
  - HEADACHE [None]
  - TONSILLITIS [None]
  - SWOLLEN TONGUE [None]
  - INFLUENZA LIKE ILLNESS [None]
  - ORAL CANDIDIASIS [None]
